FAERS Safety Report 6410490-0 (Version None)
Quarter: 2009Q4

REPORT INFORMATION
  Report Type: 
  Country: None (occurrence: None)
  Receive Date: 20091022
  Receipt Date: 20091015
  Transmission Date: 20100525
  Serious: Yes (Hospitalization)
  Sender: FDA-Public Use
  Company Number: US-MERCK-0910USA01808

PATIENT
  Age: 77 Year
  Sex: Female

DRUGS (9)
  1. COZAAR [Suspect]
     Indication: HYPERTENSION
     Route: 048
     Dates: start: 20080101
  2. LIPITOR [Concomitant]
     Route: 065
  3. CARDIZEM [Concomitant]
     Route: 065
  4. ISOSORBIDE [Concomitant]
     Route: 065
  5. LOPRESSOR [Concomitant]
     Route: 065
  6. INSULIN [Concomitant]
     Route: 065
  7. ZOLPIDEM TARTRATE [Concomitant]
     Route: 065
  8. PLAVIX [Concomitant]
     Route: 065
  9. XANAX [Concomitant]
     Route: 065

REACTIONS (3)
  - BLOOD POTASSIUM DECREASED [None]
  - BLOOD PRESSURE DECREASED [None]
  - HEART RATE DECREASED [None]
